FAERS Safety Report 14268020 (Version 3)
Quarter: 2018Q3

REPORT INFORMATION
  Report Type: Spontaneous
  Country: US (occurrence: US)
  Receive Date: 20171211
  Receipt Date: 20180808
  Transmission Date: 20181010
  Serious: Yes (Other)
  Sender: FDA-Public Use
  Company Number: US-ASTELLAS-2017US051601

PATIENT
  Age: 4 Year
  Sex: Male

DRUGS (2)
  1. TACROLIMUS SYSTEMIC [Suspect]
     Active Substance: TACROLIMUS
     Indication: HEART TRANSPLANT
     Dosage: 0.18 MG/KG, ONCE DAILY
     Route: 048
  2. AZATHIOPRINE. [Concomitant]
     Active Substance: AZATHIOPRINE
     Indication: HEART TRANSPLANT
     Route: 065

REACTIONS (8)
  - Sinusitis [Unknown]
  - Eosinophilia [Unknown]
  - Otitis media [Unknown]
  - Post transplant lymphoproliferative disorder [Recovered/Resolved]
  - Paradoxical drug reaction [Recovered/Resolved]
  - Skin infection [Unknown]
  - Eczema [Recovered/Resolved]
  - Off label use [Unknown]
